FAERS Safety Report 6009995-6 (Version None)
Quarter: 2008Q4

REPORT INFORMATION
  Report Type: 
  Country: None (occurrence: None)
  Receive Date: 20081216
  Receipt Date: 20081204
  Transmission Date: 20090506
  Serious: Yes (Death)
  Sender: FDA-Public Use
  Company Number: 08H-163-0315323-00

PATIENT
  Age: 56 Year
  Sex: Female

DRUGS (3)
  1. DOBUTAMINE HCL IN DEXTROSE 5% [Suspect]
     Indication: STRESS ECHOCARDIOGRAM
     Dosage: 20 MCG/KG/MIN, NOT REPORTED, INTRAVENOUS
     Route: 042
  2. ATROPINE [Concomitant]
  3. LIDOCAINE [Concomitant]

REACTIONS (5)
  - ADRENAL HAEMORRHAGE [None]
  - CARDIOGENIC SHOCK [None]
  - MULTI-ORGAN DISORDER [None]
  - PHAEOCHROMOCYTOMA [None]
  - RESPIRATORY FAILURE [None]
